FAERS Safety Report 10359156 (Version 2)
Quarter: 2014Q4

REPORT INFORMATION
  Report Type: Report from Study
  Country: BR (occurrence: BR)
  Receive Date: 20140804
  Receipt Date: 20141009
  Transmission Date: 20150528
  Serious: Yes (Hospitalization, Other)
  Sender: FDA-Public Use
  Company Number: PHHY2014BR092278

PATIENT
  Age: 64 Year
  Sex: Female
  Weight: 42 kg

DRUGS (11)
  1. SANDOSTATIN LAR DEPOT [Suspect]
     Active Substance: OCTREOTIDE ACETATE
     Indication: HEPATIC CANCER
  2. CRESTOR [Concomitant]
     Active Substance: ROSUVASTATIN CALCIUM
     Indication: BLOOD TRIGLYCERIDES ABNORMAL
     Dosage: UNK UKN, UNK
  3. RIVOTRIL [Concomitant]
     Active Substance: CLONAZEPAM
     Indication: SLEEP DISORDER
  4. DECADRON [Concomitant]
     Active Substance: DEXAMETHASONE
     Indication: SEIZURE
     Dosage: 2 DF, QD (1 TABLET AT 07:15 AM AND 1 TABLET AT 7 PM)
     Route: 065
     Dates: start: 2013
  5. SANDOSTATIN LAR DEPOT [Suspect]
     Active Substance: OCTREOTIDE ACETATE
     Indication: NEOPLASM
  6. SANDOSTATIN LAR DEPOT [Suspect]
     Active Substance: OCTREOTIDE ACETATE
     Indication: OFF LABEL USE
  7. HIDANTAL [Concomitant]
     Active Substance: PHENYTOIN SODIUM
     Indication: NEOPLASM MALIGNANT
     Dosage: 1 DF, QD
     Route: 065
     Dates: start: 2013
  8. SANDOSTATIN LAR DEPOT [Suspect]
     Active Substance: OCTREOTIDE ACETATE
     Indication: NEOPLASM MALIGNANT
     Dosage: 1 DF, EVERY 28 DAYS
     Dates: start: 201305
  9. RIVOTRIL [Concomitant]
     Active Substance: CLONAZEPAM
     Indication: ANXIETY DISORDER
     Dosage: 1 DF, QD (AT 08:40 PM)
     Route: 065
     Dates: start: 2013
  10. CARVEDILOL. [Concomitant]
     Active Substance: CARVEDILOL
     Indication: CARDIAC DISORDER
     Dosage: 2 DF, QD (1 TABLET AT 8 AM AND 1 TABLET AT 8 PM)
     Route: 065
     Dates: start: 2013
  11. HIDANTAL [Concomitant]
     Active Substance: PHENYTOIN SODIUM
     Indication: METASTASES TO CENTRAL NERVOUS SYSTEM

REACTIONS (14)
  - Hypoaesthesia [Unknown]
  - Fall [Unknown]
  - Hypertrichosis [Unknown]
  - Malaise [Unknown]
  - Face injury [Recovered/Resolved]
  - Diabetes mellitus [Unknown]
  - Nausea [Recovered/Resolved]
  - Weight decreased [Recovered/Resolved]
  - Fear of falling [Recovering/Resolving]
  - Decreased appetite [Recovered/Resolved]
  - Metastases to central nervous system [Recovered/Resolved]
  - Malignant neoplasm progression [Recovered/Resolved]
  - Seizure [Recovered/Resolved]
  - Alopecia [Recovered/Resolved]

NARRATIVE: CASE EVENT DATE: 201306
